FAERS Safety Report 4465907-8 (Version None)
Quarter: 2004Q3

REPORT INFORMATION
  Report Type: 
  Country: None (occurrence: None)
  Receive Date: 20040929
  Receipt Date: 20040908
  Transmission Date: 20050211
  Serious: Yes (Other)
  Sender: FDA-Public Use
  Company Number: USA040977573

PATIENT
  Age: 16 Year
  Sex: Male
  Weight: 89 kg

DRUGS (2)
  1. STRATTERA [Suspect]
     Dosage: 80 MG/1 IN THE MORNING
     Dates: start: 20040803
  2. ALLEGRA-D [Concomitant]

REACTIONS (11)
  - AMNESIA [None]
  - BLOOD ELECTROLYTES ABNORMAL [None]
  - DECREASED APPETITE [None]
  - DEHYDRATION [None]
  - DISTURBANCE IN ATTENTION [None]
  - FEELING ABNORMAL [None]
  - IRRITABILITY [None]
  - LOSS OF CONSCIOUSNESS [None]
  - NAUSEA [None]
  - VOMITING [None]
  - WEIGHT DECREASED [None]
